FAERS Safety Report 23419524 (Version 1)
Quarter: 2024Q1

REPORT INFORMATION
  Report Type: Spontaneous
  Country: BE (occurrence: BE)
  Receive Date: 20240118
  Receipt Date: 20240118
  Transmission Date: 20240409
  Serious: Yes (Hospitalization)
  Sender: FDA-Public Use
  Company Number: None

PATIENT
  Age: 57 Year
  Sex: Male
  Weight: 76.9 kg

DRUGS (11)
  1. TOCILIZUMAB [Suspect]
     Active Substance: TOCILIZUMAB
     Indication: Polymyalgia rheumatica
     Route: 065
     Dates: start: 20231027, end: 20231124
  2. DULOXETINE [Concomitant]
     Active Substance: DULOXETINE
     Dosage: ^S MORGENS
  3. MAGNESIUM [Concomitant]
     Active Substance: MAGNESIUM
  4. APEXXNAR [Concomitant]
  5. PIROXICAM [Concomitant]
     Active Substance: PIROXICAM
  6. METHOTREXATE [Concomitant]
     Active Substance: METHOTREXATE
  7. FOLIC ACID [Concomitant]
     Active Substance: FOLIC ACID
     Dosage: WORDT TOEGEDIEND 6 DAGEN/WEEK
  8. PANTOPRAZOLE [Concomitant]
     Active Substance: PANTOPRAZOLE
  9. MEDROL [Concomitant]
     Active Substance: METHYLPREDNISOLONE
  10. LEVOTHYROXINE [Concomitant]
     Active Substance: LEVOTHYROXINE\LEVOTHYROXINE SODIUM
     Dosage: ^S MORGENS
  11. DAFALGAN [Concomitant]
     Active Substance: ACETAMINOPHEN

REACTIONS (1)
  - Fixed eruption [Recovering/Resolving]
